FAERS Safety Report 9325669 (Version 1)
Quarter: 2013Q2

REPORT INFORMATION
  Report Type: Spontaneous
  Country: GB (occurrence: GB)
  Receive Date: 20130604
  Receipt Date: 20130604
  Transmission Date: 20140414
  Serious: Yes (Hospitalization, Other)
  Sender: FDA-Public Use
  Company Number: GB-ROCHE-1232200

PATIENT
  Age: 52 Year
  Sex: Male

DRUGS (1)
  1. AVASTIN [Suspect]
     Indication: RECTAL CANCER METASTATIC
     Route: 065
     Dates: start: 2011

REACTIONS (6)
  - Gastrointestinal haemorrhage [Unknown]
  - Varices oesophageal [Unknown]
  - Metastases to lung [Unknown]
  - Peritoneal disorder [Unknown]
  - Portal hypertension [Unknown]
  - Splenomegaly [Unknown]
